FAERS Safety Report 15070244 (Version 2)
Quarter: 2018Q4

REPORT INFORMATION
  Report Type: Report from Study
  Country: US (occurrence: US)
  Receive Date: 20180626
  Receipt Date: 20181224
  Transmission Date: 20190204
  Serious: Yes (Other)
  Sender: FDA-Public Use
  Company Number: PHHY2017US122392

PATIENT
  Age: 44 Year
  Sex: Female

DRUGS (2)
  1. GILENYA [Suspect]
     Active Substance: FINGOLIMOD HYDROCHLORIDE
     Indication: MULTIPLE SCLEROSIS
     Dosage: UNK UNK, QD
     Route: 048
  2. TYLENOL [Concomitant]
     Active Substance: ACETAMINOPHEN
     Indication: PAIN
     Dosage: UNK UNK, PRN
     Route: 065
     Dates: start: 20171018

REACTIONS (8)
  - Lymphocyte count decreased [Unknown]
  - Bronchitis [Unknown]
  - Multiple sclerosis relapse [Unknown]
  - Alanine aminotransferase increased [Unknown]
  - Sinusitis [Unknown]
  - Tooth abscess [Recovered/Resolved]
  - Influenza [Unknown]
  - Fall [Unknown]

NARRATIVE: CASE EVENT DATE: 20170511
